FAERS Safety Report 5742859-1 (Version None)
Quarter: 2008Q2

REPORT INFORMATION
  Report Type: 
  Country: None (occurrence: None)
  Receive Date: 20080515
  Receipt Date: 20080515
  Transmission Date: 20081010
  Serious: Yes (Other)
  Sender: FDA-Public Use
  Company Number: None

PATIENT
  Age: 69 Year
  Sex: Male
  Weight: 115.2136 kg

DRUGS (1)
  1. DIGITEK 125MCG BERTEK P [Suspect]
     Indication: ARRHYTHMIA
     Dosage: 1 TABLET 1 TIME DAILY AT BE PO
     Route: 048
     Dates: start: 20080124, end: 20080404

REACTIONS (17)
  - ANOREXIA [None]
  - BRADYCARDIA [None]
  - CONFUSIONAL STATE [None]
  - DEPRESSED LEVEL OF CONSCIOUSNESS [None]
  - DIARRHOEA [None]
  - DIZZINESS [None]
  - DYSPNOEA [None]
  - HEART RATE IRREGULAR [None]
  - HYPOTENSION [None]
  - NAUSEA [None]
  - NOCTURIA [None]
  - PALPITATIONS [None]
  - PHARMACEUTICAL PRODUCT COMPLAINT [None]
  - SWELLING [None]
  - THERAPEUTIC AGENT TOXICITY [None]
  - URINE OUTPUT DECREASED [None]
  - VISUAL DISTURBANCE [None]
